FAERS Safety Report 10303204 (Version 2)
Quarter: 2014Q3

REPORT INFORMATION
  Report Type: Report from Study
  Country: IT (occurrence: IT)
  Receive Date: 20140714
  Receipt Date: 20140714
  Transmission Date: 20150326
  Serious: Yes (Hospitalization)
  Sender: FDA-Public Use
  Company Number: PHHY2013IT047905

PATIENT
  Age: 65 Year
  Sex: Male
  Weight: 97 kg

DRUGS (5)
  1. CERTICAN [Suspect]
     Active Substance: EVEROLIMUS
     Indication: IMMUNOSUPPRESSION
     Dosage: 0.75 MG, PER DAY
     Route: 048
     Dates: start: 20070219
  2. LASIX [Concomitant]
     Active Substance: FUROSEMIDE
     Indication: HYPERTENSION
     Dates: start: 20030818
  3. LEVOFLOXACIN [Concomitant]
     Active Substance: LEVOFLOXACIN
     Indication: DIABETES MELLITUS
     Dates: start: 20060222
  4. RAMIPRIL ACTAVIS [Suspect]
     Active Substance: RAMIPRIL
     Indication: ANGIOEDEMA
  5. TRIATEC [Concomitant]
     Active Substance: RAMIPRIL
     Indication: HYPERTENSION
     Dates: start: 20030808

REACTIONS (4)
  - Bronchitis [Recovered/Resolved]
  - Cardiac failure [Recovered/Resolved]
  - Angioedema [Recovered/Resolved]
  - Pneumonia [Recovered/Resolved]

NARRATIVE: CASE EVENT DATE: 20090416
